FAERS Safety Report 7195589 (Version 2)
Quarter: 2016Q1

REPORT INFORMATION
  Report Type: Spontaneous
  Country: DE (occurrence: DE)
  Receive Date: 20091201
  Receipt Date: 20160128
  Transmission Date: 20160526
  Serious: Yes (Hospitalization, Other)
  Sender: FDA-Public Use
  Company Number: DE-BRISTOL-MYERS SQUIBB COMPANY-14873343

PATIENT
  Age: 25 Year
  Sex: Female

DRUGS (1)
  1. ABILIFY [Suspect]
     Active Substance: ARIPIPRAZOLE
     Indication: PRODUCT USED FOR UNKNOWN INDICATION
     Dosage: 30 MG, UNK
     Route: 065

REACTIONS (5)
  - Live birth [Unknown]
  - Intracranial pressure increased [Unknown]
  - Papilloedema [Unknown]
  - Headache [Unknown]
  - Maternal exposure during pregnancy [Recovered/Resolved]
